FAERS Safety Report 18257556 (Version 2)
Quarter: 2020Q4

REPORT INFORMATION
  Report Type: Spontaneous
  Country: US (occurrence: US)
  Receive Date: 20200911
  Receipt Date: 20201006
  Transmission Date: 20210113
  Serious: No
  Sender: FDA-Public Use
  Company Number: US-CELGENEUS-USA-20200901021

PATIENT
  Sex: Female

DRUGS (4)
  1. METFORMIN [Concomitant]
     Active Substance: METFORMIN HYDROCHLORIDE
     Indication: PRODUCT USED FOR UNKNOWN INDICATION
     Route: 065
  2. POMALYST [Suspect]
     Active Substance: POMALIDOMIDE
     Indication: PLASMA CELL MYELOMA
     Dosage: 1 MILLIGRAM
     Route: 048
     Dates: start: 201908
  3. GABAPENTIN. [Concomitant]
     Active Substance: GABAPENTIN
     Indication: PRODUCT USED FOR UNKNOWN INDICATION
     Route: 065
  4. POMALYST [Suspect]
     Active Substance: POMALIDOMIDE
     Indication: PLASMA CELL MYELOMA RECURRENT
     Dosage: 4 MILLIGRAM
     Route: 048
     Dates: start: 201907

REACTIONS (12)
  - Dyspepsia [Unknown]
  - Diarrhoea [Unknown]
  - Eye pain [Recovering/Resolving]
  - Rash macular [Unknown]
  - Epistaxis [Unknown]
  - Neutropenia [Unknown]
  - Bone pain [Unknown]
  - Visual impairment [Unknown]
  - Swelling [Unknown]
  - Peripheral swelling [Unknown]
  - Nausea [Unknown]
  - Red blood cell count decreased [Unknown]
